FAERS Safety Report 9168467 (Version 1)
Quarter: 2013Q1

REPORT INFORMATION
  Report Type: Spontaneous
  Country: US (occurrence: US)
  Receive Date: 20130318
  Receipt Date: 20130318
  Transmission Date: 20140127
  Serious: Yes (Hospitalization, Other)
  Sender: FDA-Public Use
  Company Number: US-BAYER-2013-030830

PATIENT
  Sex: Female

DRUGS (1)
  1. MIRENA [Suspect]
     Dosage: 20 MCG/24HR, CONT
     Route: 015
     Dates: start: 20090801, end: 20100104

REACTIONS (7)
  - Device dislocation [None]
  - Abdominal pain [None]
  - Ovarian cyst [None]
  - Urinary tract infection [Not Recovered/Not Resolved]
  - Injury [None]
  - Pain [None]
  - Emotional distress [None]
